FAERS Safety Report 15850014 (Version 1)
Quarter: 2019Q1

REPORT INFORMATION
  Report Type: Spontaneous
  Country: US (occurrence: US)
  Receive Date: 20190121
  Receipt Date: 20190121
  Transmission Date: 20190417
  Serious: Yes (Hospitalization)
  Sender: FDA-Public Use
  Company Number: US-SA-2019SA012293

PATIENT
  Age: 16 Year
  Sex: Male

DRUGS (3)
  1. BASAGLAR [Concomitant]
     Active Substance: INSULIN GLARGINE
     Dosage: AT NIGHT
  2. ADMELOG [Suspect]
     Active Substance: INSULIN LISPRO
     Indication: TYPE 2 DIABETES MELLITUS
     Dosage: 15 UNITS PER MEAL AND 5 UNITS PER SNACK (6 TIMES A DAY)
     Route: 065
  3. ADMELOG [Suspect]
     Active Substance: INSULIN LISPRO
     Dosage: 10 UNITS PER MEAL AND 5 UNITS PER SNACK (6 TIMES A DAY)
     Route: 065

REACTIONS (2)
  - Blood glucose increased [Unknown]
  - Product dose omission [Unknown]
